FAERS Safety Report 25926257 (Version 1)
Quarter: 2025Q4

REPORT INFORMATION
  Report Type: Spontaneous
  Country: US (occurrence: US)
  Receive Date: 20251015
  Receipt Date: 20251015
  Transmission Date: 20260117
  Serious: No
  Sender: BAUSCH AND LOMB
  Company Number: US-BAUSCH-BH-2025-018473

PATIENT
  Age: 51 Year
  Sex: Female

DRUGS (1)
  1. JUBLIA [Suspect]
     Active Substance: EFINACONAZOLE
     Indication: Product used for unknown indication
     Route: 061

REACTIONS (4)
  - Tinea pedis [Unknown]
  - Rash vesicular [Unknown]
  - Rash erythematous [Unknown]
  - Skin weeping [Unknown]

NARRATIVE: CASE EVENT DATE: 20251001
